FAERS Safety Report 17858216 (Version 1)
Quarter: 2020Q2

REPORT INFORMATION
  Report Type: Spontaneous
  Country: US (occurrence: US)
  Receive Date: 20200603
  Receipt Date: 20200603
  Transmission Date: 20200714
  Serious: No
  Sender: FDA-Public Use
  Company Number: None

PATIENT
  Age: 51 Year
  Sex: Female

DRUGS (1)
  1. STIVARGA [Suspect]
     Active Substance: REGORAFENIB
     Indication: RECTOSIGMOID CANCER
     Route: 048
     Dates: end: 20200520

REACTIONS (6)
  - Decreased appetite [None]
  - Abdominal pain upper [None]
  - Vomiting [None]
  - Fatigue [None]
  - Flank pain [None]
  - Weight decreased [None]

NARRATIVE: CASE EVENT DATE: 20200505
